FAERS Safety Report 10187175 (Version 1)
Quarter: 2014Q2

REPORT INFORMATION
  Report Type: Spontaneous
  Country: IT (occurrence: None)
  Receive Date: 20140520
  Receipt Date: 20140520
  Transmission Date: 20141212
  Serious: Yes (Other)
  Sender: FDA-Public Use
  Company Number: 2014000144

PATIENT
  Age: 84 Year
  Sex: Male

DRUGS (3)
  1. ACEON [Suspect]
     Indication: HYPERTENSION
     Route: 048
  2. NORVASC (AMLODIPINE BESILATE) [Suspect]
     Indication: HYPERTENSION
     Route: 048
  3. ACETYLSALICYLIC ACID (ACETYLSALICYLIC ACID) [Concomitant]

REACTIONS (4)
  - Balance disorder [None]
  - Feeling hot [None]
  - Dysstasia [None]
  - Drug ineffective [None]
